FAERS Safety Report 24953460 (Version 1)
Quarter: 2025Q1

REPORT INFORMATION
  Report Type: Spontaneous
  Country: NZ (occurrence: NZ)
  Receive Date: 20250211
  Receipt Date: 20250211
  Transmission Date: 20250409
  Serious: Yes (Other)
  Sender: BAXTER
  Company Number: NZ-BAXTER-2024BAX020481

PATIENT
  Age: 66 Year
  Sex: Male

DRUGS (16)
  1. ARTISS [Suspect]
     Active Substance: FIBRINOGEN HUMAN\HUMAN THROMBIN
     Indication: Pterygium operation
     Route: 061
     Dates: start: 20240612, end: 20240612
  2. ARTISS [Suspect]
     Active Substance: FIBRINOGEN HUMAN\HUMAN THROMBIN
     Indication: Pterygium operation
     Route: 061
     Dates: start: 20240612, end: 20240612
  3. ARTISS [Suspect]
     Active Substance: FIBRINOGEN HUMAN\HUMAN THROMBIN
     Indication: Pterygium operation
     Route: 061
     Dates: start: 20240612, end: 20240612
  4. ARTISS [Suspect]
     Active Substance: FIBRINOGEN HUMAN\HUMAN THROMBIN
     Indication: Pterygium operation
     Route: 061
     Dates: start: 20240612, end: 20240612
  5. ARTISS [Suspect]
     Active Substance: FIBRINOGEN HUMAN\HUMAN THROMBIN
     Indication: Tissue sealing
  6. ARTISS [Suspect]
     Active Substance: FIBRINOGEN HUMAN\HUMAN THROMBIN
     Indication: Tissue sealing
  7. ARTISS [Suspect]
     Active Substance: FIBRINOGEN HUMAN\HUMAN THROMBIN
     Indication: Tissue sealing
  8. ARTISS [Suspect]
     Active Substance: FIBRINOGEN HUMAN\HUMAN THROMBIN
     Indication: Tissue sealing
  9. ARTISS [Suspect]
     Active Substance: FIBRINOGEN HUMAN\HUMAN THROMBIN
     Indication: Haemostasis
  10. ARTISS [Suspect]
     Active Substance: FIBRINOGEN HUMAN\HUMAN THROMBIN
     Indication: Haemostasis
  11. ARTISS [Suspect]
     Active Substance: FIBRINOGEN HUMAN\HUMAN THROMBIN
     Indication: Haemostasis
  12. ARTISS [Suspect]
     Active Substance: FIBRINOGEN HUMAN\HUMAN THROMBIN
     Indication: Haemostasis
  13. ALCAINE [Suspect]
     Active Substance: PROPARACAINE HYDROCHLORIDE
     Indication: Anaesthetic premedication
     Route: 061
     Dates: start: 20240612, end: 20240612
  14. MAXITROL [Suspect]
     Active Substance: DEXAMETHASONE\NEOMYCIN SULFATE\POLYMYXIN B SULFATE
     Indication: Anaesthetic premedication
     Route: 061
     Dates: start: 20240613, end: 20240613
  15. MAXITROL [Suspect]
     Active Substance: DEXAMETHASONE\NEOMYCIN SULFATE\POLYMYXIN B SULFATE
     Indication: Anaesthetic premedication
     Route: 061
     Dates: start: 20240613, end: 20240613
  16. SYSTANE ULTRA [Suspect]
     Active Substance: POLYETHYLENE GLYCOL 400\PROPYLENE GLYCOL
     Indication: Anaesthetic premedication
     Route: 061
     Dates: start: 20240613, end: 20240613

REACTIONS (2)
  - Therapeutic product effect delayed [Recovering/Resolving]
  - Transplant failure [Recovering/Resolving]

NARRATIVE: CASE EVENT DATE: 20240612
